FAERS Safety Report 15920108 (Version 2)
Quarter: 2021Q1

REPORT INFORMATION
  Report Type: Spontaneous
  Country: US (occurrence: US)
  Receive Date: 20190205
  Receipt Date: 20210226
  Transmission Date: 20210419
  Serious: No
  Sender: FDA-Public Use
  Company Number: US-ROCHE-2060323

PATIENT
  Sex: Female
  Weight: 68.1 kg

DRUGS (1)
  1. XOLAIR [Suspect]
     Active Substance: OMALIZUMAB
     Indication: PRODUCT USED FOR UNKNOWN INDICATION
     Dosage: 3 SHOTS EVERY 2 WEEKS ;ONGOING: UNKNOWN
     Route: 065

REACTIONS (1)
  - Pregnancy [Unknown]
